FAERS Safety Report 15849715 (Version 7)
Quarter: 2025Q3

REPORT INFORMATION
  Report Type: Spontaneous
  Country: EU (occurrence: EU)
  Receive Date: 20190121
  Receipt Date: 20250804
  Transmission Date: 20251020
  Serious: Yes (Hospitalization, Other)
  Sender: MYLAN
  Company Number: EU-002147023-PHHY2018SK035066

PATIENT
  Age: 57 Year
  Sex: Male

DRUGS (80)
  1. VANCOMYCIN [Suspect]
     Active Substance: VANCOMYCIN
     Indication: Pneumonia
  2. VANCOMYCIN [Suspect]
     Active Substance: VANCOMYCIN
     Route: 065
  3. VANCOMYCIN [Suspect]
     Active Substance: VANCOMYCIN
     Route: 065
  4. VANCOMYCIN [Suspect]
     Active Substance: VANCOMYCIN
  5. BENDAMUSTINE [Suspect]
     Active Substance: BENDAMUSTINE
     Indication: Chronic lymphocytic leukaemia
  6. BENDAMUSTINE [Suspect]
     Active Substance: BENDAMUSTINE
     Route: 065
  7. BENDAMUSTINE [Suspect]
     Active Substance: BENDAMUSTINE
     Route: 065
  8. BENDAMUSTINE [Suspect]
     Active Substance: BENDAMUSTINE
  9. FLUDARABINE [Suspect]
     Active Substance: FLUDARABINE PHOSPHATE
     Indication: Chronic lymphocytic leukaemia
  10. FLUDARABINE [Suspect]
     Active Substance: FLUDARABINE PHOSPHATE
     Indication: Malignant neoplasm progression
     Route: 065
  11. FLUDARABINE [Suspect]
     Active Substance: FLUDARABINE PHOSPHATE
     Route: 065
  12. FLUDARABINE [Suspect]
     Active Substance: FLUDARABINE PHOSPHATE
  13. CIPROFLOXACIN [Suspect]
     Active Substance: CIPROFLOXACIN
     Indication: Pneumonia
  14. CIPROFLOXACIN [Suspect]
     Active Substance: CIPROFLOXACIN
     Route: 065
  15. CIPROFLOXACIN [Suspect]
     Active Substance: CIPROFLOXACIN
     Route: 065
  16. CIPROFLOXACIN [Suspect]
     Active Substance: CIPROFLOXACIN
  17. FLUCONAZOLE [Suspect]
     Active Substance: FLUCONAZOLE
     Indication: Prophylaxis
  18. FLUCONAZOLE [Suspect]
     Active Substance: FLUCONAZOLE
     Route: 065
  19. FLUCONAZOLE [Suspect]
     Active Substance: FLUCONAZOLE
     Route: 065
  20. FLUCONAZOLE [Suspect]
     Active Substance: FLUCONAZOLE
  21. RITUXIMAB [Suspect]
     Active Substance: RITUXIMAB
     Indication: Malignant neoplasm progression
  22. RITUXIMAB [Suspect]
     Active Substance: RITUXIMAB
     Indication: Chronic lymphocytic leukaemia
     Route: 065
  23. RITUXIMAB [Suspect]
     Active Substance: RITUXIMAB
     Route: 065
  24. RITUXIMAB [Suspect]
     Active Substance: RITUXIMAB
  25. ARZERRA [Suspect]
     Active Substance: OFATUMUMAB
     Indication: Chronic lymphocytic leukaemia
     Dosage: 8 DOSAGE FORM, QW
     Dates: start: 201409
  26. ARZERRA [Suspect]
     Active Substance: OFATUMUMAB
     Indication: Malignant neoplasm progression
     Dosage: 8 DOSAGE FORM, QW
     Route: 065
     Dates: start: 201409
  27. ARZERRA [Suspect]
     Active Substance: OFATUMUMAB
     Dosage: 8 DOSAGE FORM, QW
     Route: 065
     Dates: start: 201409
  28. ARZERRA [Suspect]
     Active Substance: OFATUMUMAB
     Dosage: 8 DOSAGE FORM, QW
     Dates: start: 201409
  29. CYCLOPHOSPHAMIDE [Suspect]
     Active Substance: CYCLOPHOSPHAMIDE
     Indication: Chronic lymphocytic leukaemia
  30. CYCLOPHOSPHAMIDE [Suspect]
     Active Substance: CYCLOPHOSPHAMIDE
     Indication: Malignant neoplasm progression
     Route: 065
  31. CYCLOPHOSPHAMIDE [Suspect]
     Active Substance: CYCLOPHOSPHAMIDE
     Route: 065
  32. CYCLOPHOSPHAMIDE [Suspect]
     Active Substance: CYCLOPHOSPHAMIDE
  33. IBRUTINIB [Concomitant]
     Active Substance: IBRUTINIB
     Indication: Chronic lymphocytic leukaemia refractory
     Dosage: 420 MILLIGRAM, QD
     Dates: start: 201412
  34. IBRUTINIB [Concomitant]
     Active Substance: IBRUTINIB
     Dosage: 420 MILLIGRAM, QD
     Route: 065
     Dates: start: 201412
  35. IBRUTINIB [Concomitant]
     Active Substance: IBRUTINIB
     Dosage: 420 MILLIGRAM, QD
     Route: 065
     Dates: start: 201412
  36. IBRUTINIB [Concomitant]
     Active Substance: IBRUTINIB
     Dosage: 420 MILLIGRAM, QD
     Dates: start: 201412
  37. TAMIFLU [Concomitant]
     Active Substance: OSELTAMIVIR PHOSPHATE
     Indication: Pneumonia
  38. TAMIFLU [Concomitant]
     Active Substance: OSELTAMIVIR PHOSPHATE
     Route: 065
  39. TAMIFLU [Concomitant]
     Active Substance: OSELTAMIVIR PHOSPHATE
     Route: 065
  40. TAMIFLU [Concomitant]
     Active Substance: OSELTAMIVIR PHOSPHATE
  41. ALEMTUZUMAB [Concomitant]
     Active Substance: ALEMTUZUMAB
     Indication: Chronic lymphocytic leukaemia
  42. ALEMTUZUMAB [Concomitant]
     Active Substance: ALEMTUZUMAB
     Indication: Malignant neoplasm progression
     Route: 065
  43. ALEMTUZUMAB [Concomitant]
     Active Substance: ALEMTUZUMAB
     Route: 065
  44. ALEMTUZUMAB [Concomitant]
     Active Substance: ALEMTUZUMAB
  45. PEFLOXACIN [Concomitant]
     Active Substance: PEFLOXACIN
     Indication: Cholecystitis
  46. PEFLOXACIN [Concomitant]
     Active Substance: PEFLOXACIN
     Route: 065
  47. PEFLOXACIN [Concomitant]
     Active Substance: PEFLOXACIN
     Route: 065
  48. PEFLOXACIN [Concomitant]
     Active Substance: PEFLOXACIN
  49. GENTAMICIN [Concomitant]
     Active Substance: GENTAMICIN
     Indication: Pneumonia
  50. GENTAMICIN [Concomitant]
     Active Substance: GENTAMICIN
     Route: 042
  51. GENTAMICIN [Concomitant]
     Active Substance: GENTAMICIN
     Route: 042
  52. GENTAMICIN [Concomitant]
     Active Substance: GENTAMICIN
  53. LEVOFLOXACIN [Concomitant]
     Active Substance: LEVOFLOXACIN
     Indication: Pneumonia
  54. LEVOFLOXACIN [Concomitant]
     Active Substance: LEVOFLOXACIN
     Route: 065
  55. LEVOFLOXACIN [Concomitant]
     Active Substance: LEVOFLOXACIN
     Route: 065
  56. LEVOFLOXACIN [Concomitant]
     Active Substance: LEVOFLOXACIN
  57. METHYLPREDNISOLONE [Concomitant]
     Active Substance: METHYLPREDNISOLONE
     Indication: Chronic lymphocytic leukaemia
  58. METHYLPREDNISOLONE [Concomitant]
     Active Substance: METHYLPREDNISOLONE
     Indication: Malignant neoplasm progression
     Route: 065
  59. METHYLPREDNISOLONE [Concomitant]
     Active Substance: METHYLPREDNISOLONE
     Route: 065
  60. METHYLPREDNISOLONE [Concomitant]
     Active Substance: METHYLPREDNISOLONE
  61. ACYCLOVIR [Concomitant]
     Active Substance: ACYCLOVIR
     Indication: Infection prophylaxis
  62. ACYCLOVIR [Concomitant]
     Active Substance: ACYCLOVIR
     Route: 065
  63. ACYCLOVIR [Concomitant]
     Active Substance: ACYCLOVIR
     Route: 065
  64. ACYCLOVIR [Concomitant]
     Active Substance: ACYCLOVIR
  65. VALGANCICLOVIR [Concomitant]
     Active Substance: VALGANCICLOVIR
     Indication: Cytomegalovirus infection
  66. VALGANCICLOVIR [Concomitant]
     Active Substance: VALGANCICLOVIR
     Route: 065
  67. VALGANCICLOVIR [Concomitant]
     Active Substance: VALGANCICLOVIR
     Route: 065
  68. VALGANCICLOVIR [Concomitant]
     Active Substance: VALGANCICLOVIR
  69. VORICONAZOLE [Concomitant]
     Active Substance: VORICONAZOLE
     Indication: Sinusitis
  70. VORICONAZOLE [Concomitant]
     Active Substance: VORICONAZOLE
     Route: 065
  71. VORICONAZOLE [Concomitant]
     Active Substance: VORICONAZOLE
     Route: 065
  72. VORICONAZOLE [Concomitant]
     Active Substance: VORICONAZOLE
  73. DOXYCYCLINE [Concomitant]
     Active Substance: DOXYCYCLINE
     Indication: Pneumonia
  74. DOXYCYCLINE [Concomitant]
     Active Substance: DOXYCYCLINE
     Route: 065
  75. DOXYCYCLINE [Concomitant]
     Active Substance: DOXYCYCLINE
     Route: 065
  76. DOXYCYCLINE [Concomitant]
     Active Substance: DOXYCYCLINE
  77. SULFAMETHOXAZOLE\TRIMETHOPRIM [Concomitant]
     Active Substance: SULFAMETHOXAZOLE\TRIMETHOPRIM
     Indication: Infection prophylaxis
  78. SULFAMETHOXAZOLE\TRIMETHOPRIM [Concomitant]
     Active Substance: SULFAMETHOXAZOLE\TRIMETHOPRIM
     Route: 065
  79. SULFAMETHOXAZOLE\TRIMETHOPRIM [Concomitant]
     Active Substance: SULFAMETHOXAZOLE\TRIMETHOPRIM
     Route: 065
  80. SULFAMETHOXAZOLE\TRIMETHOPRIM [Concomitant]
     Active Substance: SULFAMETHOXAZOLE\TRIMETHOPRIM

REACTIONS (7)
  - Drug resistance [Unknown]
  - Pseudomonas infection [Recovering/Resolving]
  - Cholecystitis [Recovering/Resolving]
  - Chronic lymphocytic leukaemia [Recovering/Resolving]
  - Malignant neoplasm progression [Recovering/Resolving]
  - Metastases to bone marrow [Unknown]
  - Metastases to lymph nodes [Unknown]

NARRATIVE: CASE EVENT DATE: 20150101
